FAERS Safety Report 7020145-X (Version None)
Quarter: 2010Q3

REPORT INFORMATION
  Report Type: 
  Country: None (occurrence: None)
  Receive Date: 20100929
  Receipt Date: 20100920
  Transmission Date: 20110219
  Serious: Yes (Other)
  Sender: FDA-Public Use
  Company Number: US-ELI_LILLY_AND_COMPANY-US201009005815

PATIENT
  Age: 61 Year
  Sex: Male

DRUGS (4)
  1. EFFIENT [Suspect]
     Indication: THROMBOSIS PROPHYLAXIS
  2. ASPIRIN [Concomitant]
  3. LOVENOX [Concomitant]
  4. NEXIUM [Concomitant]

REACTIONS (1)
  - THROMBOSIS IN DEVICE [None]
